FAERS Safety Report 5818530-4 (Version None)
Quarter: 2008Q3

REPORT INFORMATION
  Report Type: 
  Country: None (occurrence: None)
  Receive Date: 20080717
  Receipt Date: 20080707
  Transmission Date: 20090109
  Serious: Yes (Other)
  Sender: FDA-Public Use
  Company Number: 2008SP014175

PATIENT
  Age: 13 Year
  Sex: Female

DRUGS (1)
  1. COPPERTONE (S-P) (ACTIVES UNKNOWN) [Suspect]
     Indication: ACCIDENTAL EXPOSURE
     Dosage: TOP
     Route: 061
     Dates: start: 20080703, end: 20080703

REACTIONS (1)
  - ANAPHYLACTIC SHOCK [None]
